FAERS Safety Report 6795196-0 (Version None)
Quarter: 2010Q2

REPORT INFORMATION
  Report Type: 
  Country: None (occurrence: None)
  Receive Date: 20100624
  Receipt Date: 20100624
  Transmission Date: 20101027
  Serious: No
  Sender: FDA-Public Use
  Company Number: None

PATIENT
  Age: 67 Year
  Sex: Female
  Weight: 47.7 kg

DRUGS (2)
  1. ACTONEL [Suspect]
     Indication: OSTEOPOROSIS
     Dosage: 35 MG ONCE WEEKLY P.O.
     Route: 048
     Dates: start: 20100201
  2. ACTONEL [Suspect]
     Indication: OSTEOPOROSIS
     Dosage: 150 MG ONCE MONTHLY P.O.
     Route: 048
     Dates: start: 20100301

REACTIONS (8)
  - AGEUSIA [None]
  - ALOPECIA [None]
  - ANOSMIA [None]
  - APHASIA [None]
  - CATARACT [None]
  - DEAFNESS [None]
  - HAIR TEXTURE ABNORMAL [None]
  - PARAESTHESIA [None]
